FAERS Safety Report 23692638 (Version 1)
Quarter: 2024Q2

REPORT INFORMATION
  Report Type: Spontaneous
  Country: US (occurrence: US)
  Receive Date: 20240401
  Receipt Date: 20240401
  Transmission Date: 20240716
  Serious: No
  Sender: FDA-Public Use
  Company Number: US-VIIV HEALTHCARE LIMITED-US2024028606

PATIENT
  Age: 23 Year
  Sex: Male

DRUGS (7)
  1. TRIUMEQ [Suspect]
     Active Substance: ABACAVIR SULFATE\DOLUTEGRAVIR SODIUM\LAMIVUDINE
     Indication: HIV infection
     Dosage: UNK
  2. WELLBUTRIN [Suspect]
     Active Substance: BUPROPION HYDROCHLORIDE
     Indication: Depression
     Dosage: UNK
  3. ABACAVIR [Suspect]
     Active Substance: ABACAVIR
     Indication: Product used for unknown indication
     Dosage: UNK
  4. VALTREX [Suspect]
     Active Substance: VALACYCLOVIR HYDROCHLORIDE
     Indication: Herpes virus infection
     Dosage: 500 MG, QD
     Route: 048
  5. BIKTARVY [Suspect]
     Active Substance: BICTEGRAVIR SODIUM\EMTRICITABINE\TENOFOVIR ALAFENAMIDE FUMARATE
     Indication: HIV infection
     Dosage: UNK UNK, QD 50 MG 200 MG 25 MG ORAL TABLET
     Route: 048
  6. GENVOYA [Suspect]
     Active Substance: COBICISTAT\ELVITEGRAVIR\EMTRICITABINE\TENOFOVIR ALAFENAMIDE FUMARATE
     Indication: Product used for unknown indication
     Dosage: UNK
  7. LEXAPRO [Suspect]
     Active Substance: ESCITALOPRAM OXALATE
     Indication: Product used for unknown indication
     Dosage: UNK

REACTIONS (19)
  - Drug hypersensitivity [Unknown]
  - Conjunctival haemorrhage [Recovering/Resolving]
  - Depression [Unknown]
  - Back pain [Unknown]
  - Ocular hyperaemia [Recovering/Resolving]
  - Ocular icterus [Recovering/Resolving]
  - Cough [Unknown]
  - Road traffic accident [Unknown]
  - Foot fracture [Unknown]
  - Fatigue [Unknown]
  - Gastrooesophageal reflux disease [Unknown]
  - Stress [Unknown]
  - Hyperaesthesia teeth [Unknown]
  - Tonsillitis [Unknown]
  - Herpes virus infection [Unknown]
  - Sleep apnoea syndrome [Unknown]
  - Tonsillar hypertrophy [Unknown]
  - Contraindicated product administered [Unknown]
  - Product dose omission issue [Unknown]

NARRATIVE: CASE EVENT DATE: 20170201
